FAERS Safety Report 7087139-X (Version None)
Quarter: 2010Q4

REPORT INFORMATION
  Report Type: 
  Country: None (occurrence: None)
  Receive Date: 20101106
  Receipt Date: 20101101
  Transmission Date: 20110411
  Serious: Yes (Other)
  Sender: FDA-Public Use
  Company Number: US-WYE-H18497610

PATIENT
  Sex: Female
  Weight: 44.49 kg

DRUGS (8)
  1. CORDARONE [Suspect]
     Indication: VENTRICULAR ARRHYTHMIA
  2. ZESTRIL [Concomitant]
  3. LANOXIN [Concomitant]
  4. IRON [Concomitant]
  5. K-DUR [Concomitant]
  6. COREG [Concomitant]
  7. PREDNISONE [Concomitant]
     Indication: SARCOIDOSIS
  8. ACETYLSALICYLIC ACID [Concomitant]
     Dosage: UNKNOWN

REACTIONS (3)
  - ATRIOVENTRICULAR BLOCK [None]
  - HEART RATE DECREASED [None]
  - SKIN DISCOLOURATION [None]
